FAERS Safety Report 18247062 (Version 1)
Quarter: 2020Q3

REPORT INFORMATION
  Report Type: Spontaneous
  Country: TR (occurrence: TR)
  Receive Date: 20200909
  Receipt Date: 20200909
  Transmission Date: 20201103
  Serious: Yes (Other)
  Sender: FDA-Public Use
  Company Number: TR-AMGEN-TURSP2020145507

PATIENT

DRUGS (4)
  1. FILGRASTIM [Suspect]
     Active Substance: FILGRASTIM
     Indication: AUTOLOGOUS HAEMATOPOIETIC STEM CELL TRANSPLANT
     Dosage: 10 MICROGRAM/KILOGRAM, AFTER CHEMO (FROM DAY+5 OF CHEMO UNTIL HARVEST)
     Route: 065
  2. LENOGRASTIM [Suspect]
     Active Substance: LENOGRASTIM
     Indication: AUTOLOGOUS HAEMATOPOIETIC STEM CELL TRANSPLANT
     Dosage: 10 MICROGRAM/KILOGRAM, AFTER CHEMO (FROM DAY+5 OF CHEMO UNTIL HARVEST)
     Route: 065
  3. COTRIMOXAZOLE [Concomitant]
     Active Substance: SULFAMETHOXAZOLE\TRIMETHOPRIM
     Indication: PROPHYLAXIS
  4. VALACYCLOVIR [Concomitant]
     Active Substance: VALACYCLOVIR HYDROCHLORIDE
     Indication: PROPHYLAXIS
     Dosage: UNK

REACTIONS (3)
  - Plasma cell myeloma recurrent [Unknown]
  - Therapy partial responder [Unknown]
  - Treatment failure [Unknown]
